FAERS Safety Report 8984609 (Version 1)
Quarter: 2012Q4

REPORT INFORMATION
  Report Type: Spontaneous
  Country: DK (occurrence: None)
  Receive Date: 20121217
  Receipt Date: 20121217
  Transmission Date: 20130627
  Serious: Yes (Other)
  Sender: FDA-Public Use
  Company Number: 2012-22032

PATIENT
  Age: 59 Year
  Sex: Female

DRUGS (7)
  1. PACLITAXEL [Suspect]
     Indication: BREAST CANCER
  2. VINORELBINE [Suspect]
     Indication: BREAST CANCER
  3. XELODA [Suspect]
     Indication: BREAST CANCER
  4. TAXOTERE [Suspect]
     Indication: BREAST CANCER
     Dates: start: 200804
  5. LAPATINIB [Suspect]
     Indication: BREAST CANCER
  6. HERCEPTIN [Suspect]
     Indication: BREAST CANCER
     Dates: start: 200804
  7. ERIBULIN [Suspect]
     Indication: BREAST CANCER

REACTIONS (2)
  - Breast cancer [None]
  - Disease progression [None]
